FAERS Safety Report 4618893-1 (Version None)
Quarter: 2005Q1

REPORT INFORMATION
  Report Type: 
  Country: None (occurrence: None)
  Receive Date: 20050323
  Receipt Date: 20050131
  Transmission Date: 20050727
  Serious: Yes (Hospitalization)
  Sender: FDA-Public Use
  Company Number: 2005BI002301

PATIENT
  Age: 40 Year
  Sex: Male
  Weight: 65.7716 kg

DRUGS (2)
  1. AVONEX [Suspect]
     Indication: MULTIPLE SCLEROSIS
     Dosage: 30 UG; QW; IM
     Route: 030
     Dates: start: 20000501, end: 20020301
  2. COPAXONE [Concomitant]

REACTIONS (2)
  - DEHYDRATION [None]
  - VIRAL INFECTION [None]
